FAERS Safety Report 16658214 (Version 1)
Quarter: 2019Q3

REPORT INFORMATION
  Report Type: Report from Study
  Country: IT (occurrence: IT)
  Receive Date: 20190801
  Receipt Date: 20190801
  Transmission Date: 20191004
  Serious: Yes (Hospitalization)
  Sender: FDA-Public Use
  Company Number: IT-TEVA-2019-IT-1066588

PATIENT
  Age: 55 Year
  Sex: Female

DRUGS (2)
  1. BENZODIAZEPINE (GRUPPO) [Suspect]
     Active Substance: BENZODIAZEPINE
     Indication: DRUG ABUSE
     Route: 048
     Dates: start: 20190310, end: 20190310
  2. OLANZAPINE. [Suspect]
     Active Substance: OLANZAPINE
     Indication: DRUG ABUSE
     Route: 048
     Dates: start: 20190310, end: 20190310

REACTIONS (4)
  - Depressed level of consciousness [Recovered/Resolved with Sequelae]
  - Drug abuse [Recovered/Resolved with Sequelae]
  - Hypotension [Recovered/Resolved with Sequelae]
  - Sopor [Recovered/Resolved with Sequelae]

NARRATIVE: CASE EVENT DATE: 20190310
